FAERS Safety Report 22033245 (Version 1)
Quarter: 2023Q1

REPORT INFORMATION
  Report Type: Report from Study
  Country: GB (occurrence: GB)
  Receive Date: 20230224
  Receipt Date: 20230224
  Transmission Date: 20230417
  Serious: Yes (Other)
  Sender: FDA-Public Use
  Company Number: GB-MYLANLABS-2023M1019885

PATIENT

DRUGS (1)
  1. TOPIRAMATE [Suspect]
     Active Substance: TOPIRAMATE
     Indication: Epilepsy
     Dosage: 300 MILLIGRAM, QD
     Route: 064

REACTIONS (4)
  - Behaviour disorder [Unknown]
  - Autism spectrum disorder [Unknown]
  - Learning disorder [Unknown]
  - Foetal exposure during pregnancy [Unknown]
